FAERS Safety Report 4524070-5 (Version None)
Quarter: 2004Q4

REPORT INFORMATION
  Report Type: 
  Country: None (occurrence: None)
  Receive Date: 20041119
  Receipt Date: 20040812
  Transmission Date: 20050328
  Serious: No
  Sender: FDA-Public Use
  Company Number: PHEH2004US08728

PATIENT
  Age: 57 Year
  Sex: Female

DRUGS (4)
  1. ZELNORM [Suspect]
     Indication: IRRITABLE BOWEL SYNDROME
     Dosage: SEE IMAGE
     Route: 048
     Dates: start: 20040601
  2. CORTEF [Concomitant]
  3. SYNTHROID [Concomitant]
  4. ZELNORM [Concomitant]

REACTIONS (6)
  - ABDOMINAL DISTENSION [None]
  - ABDOMINAL PAIN [None]
  - BREAST SWELLING [None]
  - BREAST TENDERNESS [None]
  - DRUG INEFFECTIVE [None]
  - WEIGHT INCREASED [None]
